FAERS Safety Report 10694747 (Version 1)
Quarter: 2015Q1

REPORT INFORMATION
  Report Type: Report from Study
  Country: GB (occurrence: GB)
  Receive Date: 20150107
  Receipt Date: 20150107
  Transmission Date: 20150721
  Serious: Yes (Other)
  Sender: FDA-Public Use
  Company Number: GB-JNJFOC-20141220462

PATIENT
  Sex: Male

DRUGS (1)
  1. STELARA [Suspect]
     Active Substance: USTEKINUMAB
     Indication: PSORIASIS
     Route: 058
     Dates: start: 20140102

REACTIONS (4)
  - Oedema peripheral [Recovering/Resolving]
  - Lower respiratory tract infection [Recovering/Resolving]
  - Psoriasis [Unknown]
  - Lower limb fracture [Recovering/Resolving]
